FAERS Safety Report 5487178-6 (Version None)
Quarter: 2007Q3

REPORT INFORMATION
  Report Type: 
  Country: None (occurrence: None)
  Receive Date: 20070925
  Receipt Date: 20070803
  Transmission Date: 20080115
  Serious: No
  Sender: FDA-Public Use
  Company Number: 2007US001305

PATIENT
  Age: 76 Year
  Sex: Female

DRUGS (2)
  1. VESICARE [Suspect]
     Indication: HYPERTONIC BLADDER
     Dosage: 5 MG, ORAL; 10 MG, ORAL
     Route: 048
  2. CRESTOR [Concomitant]

REACTIONS (2)
  - BLADDER DISCOMFORT [None]
  - DRUG INEFFECTIVE [None]
